FAERS Safety Report 12523009 (Version 1)
Quarter: 2016Q3

REPORT INFORMATION
  Report Type: Not Available
  Country: US (occurrence: US)
  Receive Date: 20160701
  Receipt Date: 20160701
  Transmission Date: 20161109
  Serious: Yes (Hospitalization)
  Sender: FDA-Public Use
  Company Number: US-ANIPHARMA-2016-US-004374

PATIENT
  Age: 69 Year
  Sex: Male

DRUGS (3)
  1. FLECAINIDE ACETATE (NON-SPECIFIC) [Suspect]
     Active Substance: FLECAINIDE ACETATE
     Dosage: 1 GRAM
     Route: 048
  2. ROPINIROLE. [Suspect]
     Active Substance: ROPINIROLE
     Dosage: 1 MG
     Route: 048
  3. CLONAZEPAM. [Suspect]
     Active Substance: CLONAZEPAM
     Dosage: 12 MG
     Route: 048

REACTIONS (6)
  - Atrial fibrillation [Recovered/Resolved]
  - Intentional overdose [Recovered/Resolved]
  - Electrocardiogram QRS complex prolonged [Recovered/Resolved]
  - Pulmonary oedema [Recovered/Resolved]
  - Hypotension [Recovered/Resolved]
  - Electrocardiogram QT prolonged [Recovered/Resolved]
